FAERS Safety Report 10463828 (Version 1)
Quarter: 2014Q3

REPORT INFORMATION
  Report Type: Spontaneous
  Country: US (occurrence: None)
  Receive Date: 20140918
  Receipt Date: 20140918
  Transmission Date: 20150326
  Serious: No
  Sender: FDA-Public Use
  Company Number: None

PATIENT
  Age: 28 Year
  Sex: Female
  Weight: 56.7 kg

DRUGS (1)
  1. CIPROFLOXACIN HCL [Suspect]
     Active Substance: CIPROFLOXACIN HYDROCHLORIDE
     Indication: URINARY TRACT INFECTION
     Dosage: 1 TABLET
     Route: 048
     Dates: start: 20140825, end: 20140825

REACTIONS (11)
  - Toxicity to various agents [None]
  - Musculoskeletal stiffness [None]
  - Activities of daily living impaired [None]
  - Anxiety [None]
  - Muscle tightness [None]
  - Abasia [None]
  - Dizziness [None]
  - Tendon pain [None]
  - Feeling abnormal [None]
  - Fatigue [None]
  - Nausea [None]

NARRATIVE: CASE EVENT DATE: 20140825
